FAERS Safety Report 5470898-7 (Version None)
Quarter: 2007Q3

REPORT INFORMATION
  Report Type: 
  Country: None (occurrence: None)
  Receive Date: 20070928
  Receipt Date: 20070925
  Transmission Date: 20080115
  Serious: Yes (Other)
  Sender: FDA-Public Use
  Company Number: US-BRISTOL-MYERS SQUIBB COMPANY-13921010

PATIENT
  Age: 70 Year
  Sex: Male
  Weight: 70 kg

DRUGS (14)
  1. CETUXIMAB [Suspect]
     Indication: PANCREATIC CARCINOMA
     Route: 042
     Dates: start: 20070702
  2. GEMCITABINE HCL [Suspect]
     Indication: PANCREATIC CARCINOMA
     Dates: start: 20070814, end: 20070814
  3. OXALIPLATIN [Suspect]
     Indication: PANCREATIC CARCINOMA
     Dates: start: 20070814, end: 20070814
  4. MULTI-VITAMIN [Concomitant]
     Indication: MEDICAL DIET
     Route: 048
  5. ABH [Concomitant]
     Indication: VOMITING
     Route: 048
  6. CRESTOR [Concomitant]
     Indication: BLOOD CHOLESTEROL
     Route: 048
  7. ACETAMINOPHEN AND HYDROCODONE BITARTRATE [Concomitant]
     Indication: PAIN
     Dosage: 5/500MG
     Route: 048
  8. IMODIUM [Concomitant]
     Indication: DIARRHOEA
     Route: 048
  9. OMEPRAZOLE [Concomitant]
     Indication: GASTROOESOPHAGEAL REFLUX DISEASE
     Route: 048
  10. PANCREASE [Concomitant]
     Indication: DYSPEPSIA
     Dosage: 2-4 CAPSULE
     Route: 048
  11. PRESERVISION AREDS [Concomitant]
     Indication: MACULAR DEGENERATION
     Route: 048
  12. PROMETHAZINE [Concomitant]
     Indication: VOMITING
     Route: 048
  13. PROPRANOLOL HCL [Concomitant]
     Indication: CARDIAC DISORDER
     Route: 048
  14. ZOFRAN [Concomitant]
     Indication: VOMITING
     Route: 048

REACTIONS (2)
  - COORDINATION ABNORMAL [None]
  - MUSCULAR WEAKNESS [None]
